FAERS Safety Report 17329748 (Version 1)
Quarter: 2020Q1

REPORT INFORMATION
  Report Type: Spontaneous
  Country: US (occurrence: US)
  Receive Date: 20200127
  Receipt Date: 20200127
  Transmission Date: 20200409
  Serious: Yes (Other)
  Sender: FDA-Public Use
  Company Number: None

PATIENT
  Age: 58 Year
  Sex: Female
  Weight: 56.7 kg

DRUGS (8)
  1. NACL 3% [Suspect]
     Active Substance: SODIUM CHLORIDE
  2. CISATRACURIUM. [Suspect]
     Active Substance: CISATRACURIUM
  3. NOREPINEPHRINE. [Suspect]
     Active Substance: NOREPINEPHRINE
  4. FENTANYL. [Suspect]
     Active Substance: FENTANYL
  5. PROPOFOL. [Suspect]
     Active Substance: PROPOFOL
     Indication: SEDATION
     Dosage: ?          OTHER FREQUENCY:CONTINUOUS;?
     Route: 041
     Dates: start: 20200111, end: 20200119
  6. PROPOFOL. [Suspect]
     Active Substance: PROPOFOL
     Indication: HAEMORRHAGIC STROKE
     Dosage: ?          OTHER FREQUENCY:CONTINUOUS;?
     Route: 041
     Dates: start: 20200111, end: 20200119
  7. MANNITOL. [Suspect]
     Active Substance: MANNITOL
  8. MIDAZOLAM HYDROCHLORIDE. [Suspect]
     Active Substance: MIDAZOLAM HYDROCHLORIDE

REACTIONS (1)
  - Extravasation [None]

NARRATIVE: CASE EVENT DATE: 20200115
